FAERS Safety Report 16011336 (Version 2)
Quarter: 2019Q1

REPORT INFORMATION
  Report Type: Spontaneous
  Country: JP (occurrence: JP)
  Receive Date: 20190227
  Receipt Date: 20190329
  Transmission Date: 20190418
  Serious: Yes (Hospitalization)
  Sender: FDA-Public Use
  Company Number: JP-ROCHE-2272702

PATIENT
  Age: 72 Year
  Sex: Male

DRUGS (7)
  1. XOFLUZA [Suspect]
     Active Substance: BALOXAVIR MARBOXIL
     Indication: INFLUENZA
     Route: 048
     Dates: start: 20190201, end: 20190201
  2. ZETIA [Concomitant]
     Active Substance: EZETIMIBE
     Route: 048
  3. REZALTAS [Concomitant]
     Active Substance: AZELNIDIPINE\OLMESARTAN MEDOXOMIL
     Route: 048
  4. BAYASPIRIN [Concomitant]
     Active Substance: ASPIRIN
     Route: 048
  5. KREMEZIN [Concomitant]
     Active Substance: ACTIVATED CHARCOAL
     Route: 048
  6. ROSUVASTATIN. [Concomitant]
     Active Substance: ROSUVASTATIN
     Dosage: OD
     Route: 065
  7. ARGAMATE [Concomitant]
     Active Substance: CALCIUM POLYSTYRENE SULFONATE
     Route: 048

REACTIONS (2)
  - Blood creatine phosphokinase increased [Recovered/Resolved]
  - Rhabdomyolysis [Recovered/Resolved]

NARRATIVE: CASE EVENT DATE: 20190205
